FAERS Safety Report 17716052 (Version 4)
Quarter: 2020Q3

REPORT INFORMATION
  Report Type: Spontaneous
  Country: US (occurrence: US)
  Receive Date: 20200428
  Receipt Date: 20200710
  Transmission Date: 20201102
  Serious: No
  Sender: FDA-Public Use
  Company Number: US-GLAXOSMITHKLINE-US2020070783

PATIENT
  Age: 72 Year
  Sex: Male

DRUGS (5)
  1. FLUTICASONE. [Concomitant]
     Active Substance: FLUTICASONE
     Indication: PRODUCT USED FOR UNKNOWN INDICATION
     Dosage: UNK
     Route: 065
  2. FLONASE [Concomitant]
     Active Substance: FLUTICASONE PROPIONATE
     Indication: PRODUCT USED FOR UNKNOWN INDICATION
     Dosage: UNK
     Route: 065
  3. INCRUSE ELLIPTA [Suspect]
     Active Substance: UMECLIDINIUM BROMIDE
     Indication: CHRONIC OBSTRUCTIVE PULMONARY DISEASE
     Dosage: 1 PUFF(S), QD
     Route: 055
     Dates: start: 202002, end: 20200409
  4. ANORO ELLIPTA [Suspect]
     Active Substance: UMECLIDINIUM BROMIDE\VILANTEROL TRIFENATATE
     Indication: PRODUCT USED FOR UNKNOWN INDICATION
     Dosage: UNK
     Route: 065
     Dates: start: 2020
  5. SPIRIVA RESPIMAT [Concomitant]
     Active Substance: TIOTROPIUM BROMIDE
     Indication: CHRONIC OBSTRUCTIVE PULMONARY DISEASE
     Dosage: UNK
     Route: 065
     Dates: start: 201912, end: 202002

REACTIONS (17)
  - Urine flow decreased [Recovered/Resolved]
  - Constipation [Not Recovered/Not Resolved]
  - Neck pain [Not Recovered/Not Resolved]
  - Dysuria [Recovered/Resolved]
  - Pain in extremity [Not Recovered/Not Resolved]
  - Adverse drug reaction [Recovered/Resolved]
  - Pollakiuria [Recovered/Resolved]
  - Pain in jaw [Not Recovered/Not Resolved]
  - Micturition disorder [Unknown]
  - Rash [Recovered/Resolved]
  - Pruritus [Recovered/Resolved]
  - Nasal congestion [Recovered/Resolved]
  - Musculoskeletal pain [Not Recovered/Not Resolved]
  - Myalgia [Unknown]
  - Product dose omission issue [Unknown]
  - Cough [Recovered/Resolved]
  - Rhinorrhoea [Not Recovered/Not Resolved]

NARRATIVE: CASE EVENT DATE: 202003
